FAERS Safety Report 18222112 (Version 1)
Quarter: 2020Q3

REPORT INFORMATION
  Report Type: Spontaneous
  Country: US (occurrence: US)
  Receive Date: 20200901
  Receipt Date: 20200901
  Transmission Date: 20201103
  Serious: Yes (Hospitalization)
  Sender: FDA-Public Use
  Company Number: None

PATIENT
  Sex: Female

DRUGS (9)
  1. XELJANZ [Suspect]
     Active Substance: TOFACITINIB CITRATE
     Indication: RHEUMATOID ARTHRITIS
     Route: 048
     Dates: start: 20180922
  2. FOLIC ACID. [Concomitant]
     Active Substance: FOLIC ACID
  3. SUMATRIPTAN. [Concomitant]
     Active Substance: SUMATRIPTAN
  4. DULOXETINE. [Concomitant]
     Active Substance: DULOXETINE
  5. LOSARTAN POT [Concomitant]
     Active Substance: LOSARTAN POTASSIUM
  6. NIFEDIPINE. [Concomitant]
     Active Substance: NIFEDIPINE
  7. CYCLOBENZAPR [Concomitant]
     Active Substance: CYCLOBENZAPRINE
  8. METHOTREXATE. [Concomitant]
     Active Substance: METHOTREXATE
  9. DOXAZOSIN [Concomitant]
     Active Substance: DOXAZOSIN MESYLATE

REACTIONS (2)
  - Product dose omission issue [None]
  - Myocardial infarction [None]
